FAERS Safety Report 5206859-2 (Version None)
Quarter: 2006Q4

REPORT INFORMATION
  Report Type: 
  Country: None (occurrence: None)
  Receive Date: 20061030
  Receipt Date: 20060912
  Transmission Date: 20070319
  Serious: No
  Sender: FDA-Public Use
  Company Number: 256860

PATIENT
  Age: 74 Year
  Sex: Female

DRUGS (4)
  1. LEVEMIR [Suspect]
     Indication: INSULIN-REQUIRING TYPE II DIABETES MELLITUS
     Dosage: 30 IU, QD, SUBCUTANEOUS
     Route: 058
     Dates: start: 20060721
  2. AVANDIA [Concomitant]
  3. GLIMEPIRIDE [Concomitant]
  4. METFORMIN HCL [Concomitant]

REACTIONS (1)
  - ABDOMINAL DISTENSION [None]
